FAERS Safety Report 9193248 (Version 1)
Quarter: 2013Q1

REPORT INFORMATION
  Report Type: Spontaneous
  Country: US (occurrence: None)
  Receive Date: 20130325
  Receipt Date: 20130325
  Transmission Date: 20140127
  Serious: No
  Sender: FDA-Public Use
  Company Number: None

PATIENT
  Age: 49 Year
  Sex: Female
  Weight: 63.5 kg

DRUGS (2)
  1. CITALOPRAM 10 MG [Suspect]
     Indication: ANXIETY
  2. METOPROLOL ER [Suspect]
     Indication: BLOOD PRESSURE

REACTIONS (4)
  - Panic attack [None]
  - Anxiety [None]
  - Anxiety [None]
  - Fear [None]
